FAERS Safety Report 15092996 (Version 3)
Quarter: 2018Q3

REPORT INFORMATION
  Report Type: Spontaneous
  Country: JP (occurrence: JP)
  Receive Date: 20180629
  Receipt Date: 20180711
  Transmission Date: 20181010
  Serious: Yes (Hospitalization, Other)
  Sender: FDA-Public Use
  Company Number: JP-PFIZER INC-2018260238

PATIENT
  Age: 63 Year
  Sex: Male

DRUGS (2)
  1. BESPONSA [Suspect]
     Active Substance: INOTUZUMAB OZOGAMICIN
     Dosage: 0.5 MG/M2, DAILY
     Route: 042
     Dates: start: 20180626
  2. BESPONSA [Suspect]
     Active Substance: INOTUZUMAB OZOGAMICIN
     Dosage: 0.8 MG/M2, DAILY
     Route: 042
     Dates: start: 20180619, end: 201806

REACTIONS (4)
  - White blood cell count decreased [Not Recovered/Not Resolved]
  - Bone pain [Unknown]
  - Facial paralysis [Unknown]
  - Neoplasm progression [Not Recovered/Not Resolved]

NARRATIVE: CASE EVENT DATE: 20180625
